FAERS Safety Report 7293359-1 (Version None)
Quarter: 2011Q1

REPORT INFORMATION
  Report Type: 
  Country: None (occurrence: None)
  Receive Date: 20110215
  Receipt Date: 20110203
  Transmission Date: 20110831
  Serious: Yes (Hospitalization, Other)
  Sender: FDA-Public Use
  Company Number: MX-WATSON-2011-00739

PATIENT
  Age: 15 Year
  Sex: Male

DRUGS (3)
  1. TRAMADOL HCL [Suspect]
     Indication: PAIN
     Dosage: 500 MG, UNKNOWN
     Route: 048
  2. TRAMADOL HCL [Suspect]
     Dosage: 25 MG, UNK
  3. NAPROXEN SODIUM [Suspect]
     Indication: PAIN
     Dosage: UNK
     Route: 048

REACTIONS (6)
  - PARANOIA [None]
  - DRUG INTERACTION [None]
  - OVERDOSE [None]
  - STATUS EPILEPTICUS [None]
  - PSYCHOTIC DISORDER [None]
  - HALLUCINATION, AUDITORY [None]
